FAERS Safety Report 9314484 (Version 1)
Quarter: 2013Q2

REPORT INFORMATION
  Report Type: Report from Study
  Country: MX (occurrence: MX)
  Receive Date: 20130529
  Receipt Date: 20130529
  Transmission Date: 20140414
  Serious: Yes (Death)
  Sender: FDA-Public Use
  Company Number: MX-SANOFI-AVENTIS-2013SA052158

PATIENT
  Age: 99 Year
  Sex: Female

DRUGS (7)
  1. PLAVIX [Suspect]
     Indication: ANTICOAGULANT THERAPY
     Route: 048
     Dates: start: 1999, end: 20130124
  2. REMINYL /UNK/ [Concomitant]
     Indication: DEMENTIA ALZHEIMER^S TYPE
     Route: 048
     Dates: start: 1999, end: 20130124
  3. AKATINOL [Concomitant]
     Indication: DEMENTIA ALZHEIMER^S TYPE
     Route: 048
     Dates: start: 1999, end: 20130124
  4. SINEMET [Concomitant]
     Indication: PARKINSON^S DISEASE
     Route: 048
     Dates: start: 1999, end: 20130124
  5. LYRICA [Concomitant]
     Indication: PRODUCT USED FOR UNKNOWN INDICATION
     Route: 048
     Dates: end: 20130124
  6. MACRODANTINA [Concomitant]
     Indication: PRODUCT USED FOR UNKNOWN INDICATION
     Route: 048
     Dates: end: 20130124
  7. SEROQUEL [Concomitant]
     Indication: PRODUCT USED FOR UNKNOWN INDICATION
     Route: 048
     Dates: end: 20130124

REACTIONS (2)
  - Dehydration [Fatal]
  - Decreased appetite [Unknown]
